FAERS Safety Report 6976446-4 (Version None)
Quarter: 2010Q3

REPORT INFORMATION
  Report Type: 
  Country: None (occurrence: None)
  Receive Date: 20100910
  Receipt Date: 20090924
  Transmission Date: 20110219
  Serious: No
  Sender: FDA-Public Use
  Company Number: US-TYCO HEALTHCARE/MALLINCKRODT-T200901806

PATIENT
  Sex: Female
  Weight: 56.689 kg

DRUGS (2)
  1. ACETAMINOPHEN AND HYDROCODONE BITARTRATE [Suspect]
     Indication: PAIN
     Dosage: TID, PRN
     Route: 048
     Dates: start: 20090301, end: 20090901
  2. MEGESTROL [Concomitant]
     Indication: HORMONE THERAPY
     Dosage: 40 MG (2 TABS), Q6HR
     Route: 048
     Dates: start: 20090501

REACTIONS (4)
  - ABDOMINAL DISCOMFORT [None]
  - NASAL DISCOMFORT [None]
  - OESOPHAGEAL PAIN [None]
  - THROAT IRRITATION [None]
